FAERS Safety Report 14338176 (Version 1)
Quarter: 2017Q4

REPORT INFORMATION
  Report Type: Spontaneous
  Country: FR (occurrence: FR)
  Receive Date: 20171229
  Receipt Date: 20171229
  Transmission Date: 20180321
  Serious: Yes (Other)
  Sender: FDA-Public Use
  Company Number: FR-009507513-1707FRA009217

PATIENT
  Age: 36 Year
  Sex: Male

DRUGS (1)
  1. DIPROSTENE [Suspect]
     Active Substance: BETAMETHASONE DIPROPIONATE\BETAMETHASONE SODIUM PHOSPHATE
     Indication: SCIATICA
     Dosage: UNK
     Route: 008
     Dates: start: 20170721, end: 20170721

REACTIONS (4)
  - Wrong drug administered [Recovered/Resolved]
  - No adverse event [Recovered/Resolved]
  - Product selection error [Recovered/Resolved]
  - Incorrect route of drug administration [Unknown]

NARRATIVE: CASE EVENT DATE: 20170721
